FAERS Safety Report 6217334-0 (Version None)
Quarter: 2009Q2

REPORT INFORMATION
  Report Type: 
  Country: None (occurrence: None)
  Receive Date: 20090608
  Receipt Date: 20090526
  Transmission Date: 20091009
  Serious: Yes (Other)
  Sender: FDA-Public Use
  Company Number: JP-PFIZER INC-2009202897

PATIENT
  Age: 60 Year

DRUGS (1)
  1. NORVASC [Suspect]
     Route: 048

REACTIONS (1)
  - PARKINSON'S DISEASE [None]
